FAERS Safety Report 9412941 (Version 2)
Quarter: 2013Q3

REPORT INFORMATION
  Report Type: Spontaneous
  Country: US (occurrence: US)
  Receive Date: 20130626
  Receipt Date: 20130731
  Transmission Date: 20140515
  Serious: Yes (Other)
  Sender: FDA-Public Use
  Company Number: JPI-P-032809

PATIENT
  Age: 52 Year
  Sex: Female
  Weight: 51.71 kg

DRUGS (3)
  1. XYREM [Suspect]
     Indication: SOMNOLENCE
     Dosage: TWO DOSES OF 2.25 GM TAKEN NIGHTLY/AT BEDTIME.
     Route: 048
     Dates: start: 20130522, end: 201305
  2. METHYLPHENIDATE HYDROCHLORIDE [Concomitant]
  3. CLONAZEPAM [Concomitant]

REACTIONS (7)
  - Hypertension [None]
  - Rash [None]
  - Respiratory tract congestion [None]
  - Nasal congestion [None]
  - Hordeolum [None]
  - Eye irritation [None]
  - Sarcoidosis [None]
